FAERS Safety Report 10038566 (Version 1)
Quarter: 2014Q1

REPORT INFORMATION
  Report Type: Spontaneous
  Country: US (occurrence: None)
  Receive Date: 20140306
  Receipt Date: 20140306
  Transmission Date: 20141002
  Serious: Yes (Other)
  Sender: FDA-Public Use
  Company Number: 163-21880-13064501

PATIENT
  Age: 74 Year
  Sex: Male

DRUGS (5)
  1. REVLIMID(LENALIDOMIDE)(CAPSULES) [Suspect]
     Indication: PLASMA CELL MYELOMA
     Route: 048
     Dates: start: 200901
  2. FUROSEMIDE(FUROSEMIDE) [Concomitant]
  3. POTASSIUM CL (POTASSIUM CHLORIDE) [Concomitant]
  4. WARFARIN SODIUM(WARFARIN SODIUM) [Concomitant]
  5. MVI (MVI) [Concomitant]

REACTIONS (2)
  - Thrombosis [None]
  - Rash [None]
